FAERS Safety Report 6074653-9 (Version None)
Quarter: 2009Q1

REPORT INFORMATION
  Report Type: 
  Country: None (occurrence: None)
  Receive Date: 20090209
  Receipt Date: 20090205
  Transmission Date: 20090719
  Serious: Yes (Death)
  Sender: FDA-Public Use
  Company Number: 2009SP000385

PATIENT
  Age: 54 Year

DRUGS (5)
  1. LUNESTA [Suspect]
     Dates: end: 20050101
  2. CYCLOBENZAPRINE [Suspect]
     Dates: end: 20050101
  3. TIAGABINE HCL [Suspect]
     Dates: end: 20050101
  4. CON MEDS [Concomitant]
  5. PREV MEDS [Concomitant]

REACTIONS (3)
  - CARDIAC ARREST [None]
  - COMPLETED SUICIDE [None]
  - RESPIRATORY ARREST [None]
